FAERS Safety Report 22630553 (Version 1)
Quarter: 2023Q2

REPORT INFORMATION
  Report Type: Spontaneous
  Country: MY (occurrence: MY)
  Receive Date: 20230622
  Receipt Date: 20230622
  Transmission Date: 20230721
  Serious: Yes (Other)
  Sender: FDA-Public Use
  Company Number: MY-ANIPHARMA-2023-MY-000014

PATIENT
  Age: 29 Year
  Sex: Male

DRUGS (1)
  1. FLUVOXAMINE [Suspect]
     Active Substance: FLUVOXAMINE
     Indication: Depression
     Dosage: UNK (100 MG,1 D)
     Route: 048

REACTIONS (2)
  - Nausea [Recovering/Resolving]
  - Drooling [Recovering/Resolving]
